FAERS Safety Report 4280990-0 (Version None)
Quarter: 2004Q1

REPORT INFORMATION
  Report Type: 
  Country: None (occurrence: None)
  Receive Date: 20040127
  Receipt Date: 20040115
  Transmission Date: 20041129
  Serious: No
  Sender: FDA-Public Use
  Company Number: 2003UW16333

PATIENT
  Age: 16 Year
  Sex: Female
  Weight: 46.9473 kg

DRUGS (3)
  1. NEXIUM [Suspect]
     Indication: GASTROOESOPHAGEAL REFLUX DISEASE
     Dosage: 40 MG
     Dates: start: 20031101
  2. ALLEGRA [Concomitant]
  3. ZOLOFT [Concomitant]

REACTIONS (10)
  - ABDOMINAL PAIN [None]
  - CHEST WALL PAIN [None]
  - DIZZINESS [None]
  - FATIGUE [None]
  - GALLBLADDER DISORDER [None]
  - LETHARGY [None]
  - NAUSEA [None]
  - RETCHING [None]
  - VISION BLURRED [None]
  - VOMITING [None]
